FAERS Safety Report 4592739-2 (Version None)
Quarter: 2005Q1

REPORT INFORMATION
  Report Type: 
  Country: None (occurrence: None)
  Receive Date: 20050228
  Receipt Date: 20050221
  Transmission Date: 20050727
  Serious: Yes (Hospitalization)
  Sender: FDA-Public Use
  Company Number: US-BRISTOL-MYERS SQUIBB COMPANY-12871067

PATIENT
  Age: 73 Year
  Sex: Male
  Weight: 68 kg

DRUGS (4)
  1. CETUXIMAB [Suspect]
     Indication: OESOPHAGEAL CARCINOMA
     Dosage: 1ST INFUSION 21-DEC-04.CETUXIMAB 250 MG/M2(472 MG/M2 EVERY WEEK IV X 6 WEEKS).WITHHELD 11-JAN-2005.
     Route: 042
  2. CARBOPLATIN [Suspect]
     Indication: OESOPHAGEAL CARCINOMA
     Dosage: 1ST CARBOPLATIN INFUSION AUC=2 (231 MG EVERY WEEK X 6) ADMINISTERED ON 21-DEC-2004.
     Route: 042
     Dates: start: 20050125
  3. PACLITAXEL [Suspect]
     Indication: OESOPHAGEAL CARCINOMA
     Dosage: 1ST INFUSION PACLITAXEL 50 MG/M2 (95 MG IV EVERY WEEK X 6) ADMINISTERED ON 21-DEC-2004.
     Route: 042
     Dates: start: 20050125
  4. RADIATION THERAPY [Suspect]
     Indication: OESOPHAGEAL CARCINOMA
     Dosage: RADIATION THERAPY 21-DEC-2004 TO 08-FEB-2005 (36 TREATMENTS).
     Dates: start: 20041221, end: 20050208

REACTIONS (4)
  - ATRIAL FLUTTER [None]
  - ATRIOVENTRICULAR BLOCK SECOND DEGREE [None]
  - DEHYDRATION [None]
  - RASH [None]
